FAERS Safety Report 8170244-4 (Version None)
Quarter: 2012Q1

REPORT INFORMATION
  Report Type: 
  Country: None (occurrence: None)
  Receive Date: 20120228
  Receipt Date: 20120224
  Transmission Date: 20120608
  Serious: Yes (Death, Hospitalization, Other)
  Sender: FDA-Public Use
  Company Number: US-VERTEX PHARMACEUTICALS INC.-AE-2012-000423

PATIENT
  Sex: Male

DRUGS (8)
  1. INCIVEK [Suspect]
     Indication: HEPATITIS C
     Route: 048
  2. FUROSEMIDE [Concomitant]
  3. POTASSIUM CHLORIDE [Concomitant]
  4. RIBAVIRIN [Concomitant]
     Indication: HEPATITIS C
     Route: 048
  5. PEGASYS [Concomitant]
     Indication: HEPATITIS C
  6. ACIPHEX [Concomitant]
  7. LORAZEPAM [Concomitant]
  8. NAPROXEN (ALEVE) [Concomitant]

REACTIONS (4)
  - DEATH [None]
  - INCISIONAL DRAINAGE [None]
  - AMYLOIDOSIS [None]
  - NEOPLASM MALIGNANT [None]
